FAERS Safety Report 8497792 (Version 3)
Quarter: 2012Q4

REPORT INFORMATION
  Report Type: Report from Study
  Country: JP (occurrence: JP)
  Receive Date: 20120406
  Receipt Date: 20120918
  Transmission Date: 20130627
  Serious: Yes (Hospitalization)
  Sender: FDA-Public Use
  Company Number: JP-ABBOTT-12P-087-0921258-00

PATIENT
  Age: 57 Year
  Sex: Male
  Weight: 54.5 kg

DRUGS (8)
  1. HUMIRA 40 MG/ 0.8 ML PRE-FILLED SYRINGE [Suspect]
     Indication: CROHN^S DISEASE
     Dosage: (160mg)
     Route: 058
     Dates: start: 20101221, end: 20101221
  2. HUMIRA 40 MG/ 0.8 ML PRE-FILLED SYRINGE [Suspect]
     Dosage: (800mg)
     Dates: start: 20110104, end: 20110104
  3. HUMIRA 40 MG/ 0.8 ML PRE-FILLED SYRINGE [Suspect]
     Dates: start: 20110118, end: 20110201
  4. MESALAZINE [Concomitant]
     Indication: CROHN^S DISEASE
     Dosage: 1500mg daily dose
     Route: 048
     Dates: end: 20110213
  5. AZATHIOPRINE [Concomitant]
     Indication: CROHN^S DISEASE
     Dosage: 50mg daily dose
     Route: 048
  6. FAMOTIDINE [Concomitant]
     Indication: PRODUCT USED FOR UNKNOWN INDICATION
     Dosage: 20 mg daily dose
     Route: 048
  7. TIQUIZIUM BROMIDE [Concomitant]
     Indication: PRODUCT USED FOR UNKNOWN INDICATION
     Dosage: 30 mg daily dose
     Route: 048
  8. SUCRALFATE HYDRATE [Concomitant]
     Indication: PRODUCT USED FOR UNKNOWN INDICATION
     Dosage: 3 gm daily dose
     Route: 048

REACTIONS (7)
  - Vasculitis cerebral [Recovering/Resolving]
  - Cerebral haemorrhage [Recovering/Resolving]
  - Dysgraphia [Unknown]
  - Hemiplegia [Unknown]
  - Brain oedema [Recovered/Resolved]
  - Autoimmune disorder [Unknown]
  - Vasculitis [Unknown]
